FAERS Safety Report 8041912-X (Version None)
Quarter: 2012Q1

REPORT INFORMATION
  Report Type: 
  Country: None (occurrence: None)
  Receive Date: 20120112
  Receipt Date: 20120112
  Transmission Date: 20120608
  Serious: Yes (Other)
  Sender: FDA-Public Use
  Company Number: None

PATIENT
  Age: 47 Year
  Sex: Male
  Weight: 72.574 kg

DRUGS (1)
  1. XIGRIS [Suspect]
     Indication: SEPSIS
     Dates: start: 20090908, end: 20090913

REACTIONS (6)
  - EOSINOPHILIC OESOPHAGITIS [None]
  - IMMUNE SYSTEM DISORDER [None]
  - AUTOIMMUNE NEUROPATHY [None]
  - PLANTAR FASCIITIS [None]
  - IMMUNOGLOBULINS DECREASED [None]
  - BURSITIS [None]
